FAERS Safety Report 16846035 (Version 1)
Quarter: 2019Q3

REPORT INFORMATION
  Report Type: Spontaneous
  Country: US (occurrence: US)
  Receive Date: 20190924
  Receipt Date: 20190924
  Transmission Date: 20191005
  Serious: No
  Sender: FDA-Public Use
  Company Number: US-MAYNE PHARMA-2019MYN000196

PATIENT

DRUGS (4)
  1. BLOOD PRESSURE MEDICATION 1 OF 2 [Concomitant]
     Indication: PRODUCT USED FOR UNKNOWN INDICATION
     Dosage: UNK, QD
     Route: 048
  2. METOPROLOL SUCCINATE. [Concomitant]
     Active Substance: METOPROLOL SUCCINATE
     Indication: PRODUCT USED FOR UNKNOWN INDICATION
     Dosage: 100 MG, QD
     Route: 048
  3. BLOOD PRESSURE MEDICATION 2 OF 2 [Concomitant]
     Indication: PRODUCT USED FOR UNKNOWN INDICATION
     Dosage: UNK, QD
     Route: 048
  4. CLONIDINE. [Suspect]
     Active Substance: CLONIDINE
     Indication: HYPERTENSION
     Dosage: 1 PATCH, QWEEK
     Route: 062
     Dates: start: 2017

REACTIONS (2)
  - Product quality issue [Unknown]
  - Drug withdrawal headache [Not Recovered/Not Resolved]

NARRATIVE: CASE EVENT DATE: 201902
